FAERS Safety Report 4444832-2 (Version None)
Quarter: 2004Q3

REPORT INFORMATION
  Report Type: 
  Country: None (occurrence: None)
  Receive Date: 20040907
  Receipt Date: 20040907
  Transmission Date: 20050211
  Serious: Yes (Hospitalization)
  Sender: FDA-Public Use
  Company Number: None

PATIENT
  Age: 53 Year
  Sex: Female
  Weight: 158.759 kg

DRUGS (2)
  1. PHENYTOIN [Suspect]
     Indication: CONVULSION
     Dosage: 106 MG/DY
  2. CARBAMAZEPINE [Suspect]
     Indication: CONVULSION
     Dosage: 200MG QID

REACTIONS (3)
  - LOSS OF CONSCIOUSNESS [None]
  - PHARMACEUTICAL PRODUCT COMPLAINT [None]
  - ROAD TRAFFIC ACCIDENT [None]
